FAERS Safety Report 7600595-0 (Version None)
Quarter: 2011Q3

REPORT INFORMATION
  Report Type: 
  Country: None (occurrence: None)
  Receive Date: 20110711
  Receipt Date: 20110708
  Transmission Date: 20111222
  Serious: Yes (Other)
  Sender: FDA-Public Use
  Company Number: JP-PFIZER INC-2011154287

PATIENT
  Age: 87 Year
  Sex: Female

DRUGS (4)
  1. PRAVASTATIN [Concomitant]
     Route: 048
  2. CELECOXIB [Suspect]
     Dosage: 200 MG, UNK
     Route: 048
     Dates: start: 20110607, end: 20110608
  3. URSO 250 [Concomitant]
     Route: 048
  4. NIVADIL [Concomitant]
     Route: 065

REACTIONS (1)
  - DIPLOPIA [None]
